FAERS Safety Report 11232928 (Version 1)
Quarter: 2015Q3

REPORT INFORMATION
  Report Type: Report from Study
  Country: US (occurrence: US)
  Receive Date: 20150701
  Receipt Date: 20150701
  Transmission Date: 20151125
  Serious: Yes (Death, Hospitalization)
  Sender: FDA-Public Use
  Company Number: US-ACTELION-A-US2015-118675

PATIENT
  Age: 77 Year
  Sex: Female

DRUGS (2)
  1. VENTAVIS [Suspect]
     Active Substance: ILOPROST
     Indication: PULMONARY HYPERTENSION
     Dosage: 5 MCG, QID
     Route: 055
     Dates: start: 20070917
  2. REVATIO [Concomitant]
     Active Substance: SILDENAFIL CITRATE

REACTIONS (5)
  - Pulmonary fibrosis [Fatal]
  - Pulmonary arterial hypertension [Fatal]
  - Condition aggravated [Fatal]
  - Dyspnoea [Unknown]
  - Systemic lupus erythematosus [Fatal]
